FAERS Safety Report 6787472-2 (Version None)
Quarter: 2010Q2

REPORT INFORMATION
  Report Type: 
  Country: None (occurrence: None)
  Receive Date: 20100623
  Receipt Date: 20070524
  Transmission Date: 20101027
  Serious: Yes (Other)
  Sender: FDA-Public Use
  Company Number: US-PFIZER INC-2007022567

PATIENT
  Sex: Female
  Weight: 57.6 kg

DRUGS (8)
  1. MEDROXYPROGESTERONE ACETATE [Suspect]
     Indication: CONTRACEPTION
     Dosage: FIRST INJECTION
     Route: 030
     Dates: start: 20050309, end: 20050309
  2. MEDROXYPROGESTERONE ACETATE [Suspect]
     Route: 030
     Dates: start: 20050602, end: 20050602
  3. MEDROXYPROGESTERONE ACETATE [Suspect]
     Route: 030
     Dates: start: 20050824, end: 20050824
  4. MEDROXYPROGESTERONE ACETATE [Suspect]
     Route: 030
     Dates: start: 20051116, end: 20051116
  5. MEDROXYPROGESTERONE ACETATE [Suspect]
     Route: 030
     Dates: start: 20060208, end: 20060208
  6. MEDROXYPROGESTERONE ACETATE [Suspect]
     Route: 030
     Dates: start: 20060503, end: 20060503
  7. MEDROXYPROGESTERONE ACETATE [Suspect]
     Route: 030
     Dates: start: 20060727, end: 20060727
  8. MEDROXYPROGESTERONE ACETATE [Suspect]
     Dosage: LAST INJECTION
     Route: 030
     Dates: start: 20061023, end: 20061023

REACTIONS (2)
  - DRUG INEFFECTIVE [None]
  - UNINTENDED PREGNANCY [None]
